FAERS Safety Report 19373535 (Version 1)
Quarter: 2021Q2

REPORT INFORMATION
  Report Type: Spontaneous
  Country: AU (occurrence: AU)
  Receive Date: 20210603
  Receipt Date: 20210603
  Transmission Date: 20210717
  Serious: Yes (Death, Other)
  Sender: FDA-Public Use
  Company Number: NVSC2021AU124433

PATIENT
  Age: 72 Year
  Sex: Male

DRUGS (2)
  1. IRBESARTAN. [Suspect]
     Active Substance: IRBESARTAN
     Indication: PRODUCT USED FOR UNKNOWN INDICATION
     Route: 065
  2. ROSUVASTATIN. [Suspect]
     Active Substance: ROSUVASTATIN
     Indication: PRODUCT USED FOR UNKNOWN INDICATION
     Route: 065

REACTIONS (11)
  - Death [Fatal]
  - Vertebral lesion [Unknown]
  - Disease recurrence [Unknown]
  - Neutropenia [Unknown]
  - Diffuse large B-cell lymphoma [Unknown]
  - Mandibular mass [Unknown]
  - Thrombocytopenia [Unknown]
  - Lymphadenopathy [Unknown]
  - Diffuse large B-cell lymphoma refractory [Unknown]
  - Hypercalcaemia [Unknown]
  - Cytopenia [Unknown]

NARRATIVE: CASE EVENT DATE: 2018
